FAERS Safety Report 9222707 (Version 1)
Quarter: 2013Q2

REPORT INFORMATION
  Report Type: Spontaneous
  Country: IN (occurrence: IN)
  Receive Date: 20130410
  Receipt Date: 20130410
  Transmission Date: 20140414
  Serious: Yes (Death)
  Sender: FDA-Public Use
  Company Number: IN-PFIZER INC-2012220732

PATIENT
  Age: 54 Year
  Sex: Female

DRUGS (1)
  1. SUTENT [Suspect]
     Indication: METASTATIC RENAL CELL CARCINOMA
     Dosage: 50 MG, 1X/DAY
     Route: 048
     Dates: start: 20120803, end: 20120831

REACTIONS (6)
  - Death [Fatal]
  - Diarrhoea [Recovering/Resolving]
  - Vomiting [Recovered/Resolved]
  - Oral mucosal erythema [Not Recovered/Not Resolved]
  - Erythema [Not Recovered/Not Resolved]
  - White blood cell count decreased [Not Recovered/Not Resolved]
